FAERS Safety Report 9168619 (Version 1)
Quarter: 2013Q1

REPORT INFORMATION
  Report Type: Spontaneous
  Country: IT (occurrence: IT)
  Receive Date: 20130318
  Receipt Date: 20130318
  Transmission Date: 20140127
  Serious: Yes (Hospitalization)
  Sender: FDA-Public Use
  Company Number: IT-PFIZER INC-2013087061

PATIENT
  Age: 75 Year
  Sex: Female

DRUGS (7)
  1. CISPLATIN [Suspect]
     Indication: LUNG CANCER METASTATIC
     Dosage: 1 DF, UNK
     Dates: start: 20130204, end: 20130204
  2. GEMCITABINE HYDROCHLORIDE [Suspect]
     Indication: LUNG CANCER METASTATIC
     Dosage: 1 DF, UNK
     Dates: start: 20130204, end: 20130204
  3. TEVAGRASTIM [Concomitant]
     Dosage: 1 DF, MONTHLY
  4. EPREX [Concomitant]
  5. SOLDESAM [Concomitant]
     Dosage: 8 MG DAILY
  6. DOBETIN [Concomitant]
  7. FOLIC ACID [Concomitant]

REACTIONS (3)
  - Anaemia [Recovering/Resolving]
  - Asthenia [Recovering/Resolving]
  - Oedema peripheral [Recovering/Resolving]
